FAERS Safety Report 6757571-X (Version None)
Quarter: 2010Q2

REPORT INFORMATION
  Report Type: 
  Country: None (occurrence: None)
  Receive Date: 20100607
  Receipt Date: 20100602
  Transmission Date: 20101027
  Serious: Yes (Hospitalization, Other)
  Sender: FDA-Public Use
  Company Number: JP-BAYER-200913634BYL

PATIENT
  Age: 69 Year
  Sex: Male
  Weight: 58 kg

DRUGS (7)
  1. NEXAVAR [Suspect]
     Indication: HEPATIC NEOPLASM MALIGNANT
     Dosage: TOTAL DAILY DOSE: 800 MG  UNIT DOSE: 200 MG
     Route: 048
     Dates: start: 20090915, end: 20090925
  2. NEXAVAR [Suspect]
     Dosage: TOTAL DAILY DOSE: 400 MG  UNIT DOSE: 200 MG
     Route: 048
     Dates: start: 20090925, end: 20090928
  3. BARACLUDE [Concomitant]
     Indication: HEPATITIS B
     Route: 048
     Dates: start: 20090701
  4. REPTOR [Concomitant]
     Indication: HEPATITIS B
     Route: 048
     Dates: start: 20090701
  5. LIVACT [Concomitant]
     Indication: HEPATIC CIRRHOSIS
     Route: 048
     Dates: start: 20090801
  6. KATIV-N [Concomitant]
     Indication: HEPATITIS B
     Route: 048
     Dates: start: 20090801
  7. HIRUDOID [Concomitant]
     Indication: PROPHYLAXIS
     Route: 061
     Dates: start: 20090920, end: 20091003

REACTIONS (5)
  - CEREBRAL ISCHAEMIA [None]
  - ERYTHEMA MULTIFORME [None]
  - HYPERAMMONAEMIA [None]
  - PHARYNGITIS [None]
  - PYREXIA [None]
